FAERS Safety Report 16144283 (Version 5)
Quarter: 2019Q4

REPORT INFORMATION
  Report Type: Report from Study
  Country: JP (occurrence: JP)
  Receive Date: 20190401
  Receipt Date: 20191226
  Transmission Date: 20200122
  Serious: Yes (Other)
  Sender: FDA-Public Use
  Company Number: JP-ALEXION PHARMACEUTICALS INC.-A201904474

PATIENT

DRUGS (6)
  1. CEFTRIAXONE. [Concomitant]
     Active Substance: CEFTRIAXONE
     Indication: INFECTION PROPHYLAXIS
     Dosage: 1 G, BID
     Route: 041
     Dates: start: 20190329, end: 20190405
  2. HEPARIN [Concomitant]
     Active Substance: HEPARIN SODIUM
     Indication: THROMBOSIS PROPHYLAXIS
     Dosage: 10000 UT, UNK
     Route: 041
     Dates: start: 20190220, end: 20190404
  3. SOLIRIS [Suspect]
     Active Substance: ECULIZUMAB
     Dosage: 900 MG, Q2W
     Route: 042
     Dates: start: 20190405, end: 20190503
  4. METHYCOBAL [Concomitant]
     Active Substance: METHYLCOBALAMIN
     Indication: VITAMIN SUPPLEMENTATION
     Dosage: 1 DF, TID
     Route: 048
     Dates: start: 20190219, end: 20190426
  5. SOLIRIS [Suspect]
     Active Substance: ECULIZUMAB
     Indication: PAROXYSMAL NOCTURNAL HAEMOGLOBINURIA
     Dosage: 600 MG, QW
     Route: 042
     Dates: start: 20190311, end: 20190329
  6. FOLIAMIN [Concomitant]
     Active Substance: FOLIC ACID
     Indication: VITAMIN SUPPLEMENTATION
     Dosage: 2 DF, BID
     Route: 048
     Dates: start: 20190219, end: 20190426

REACTIONS (7)
  - Bradycardia foetal [Recovered/Resolved]
  - Foetal growth restriction [Recovered/Resolved]
  - Nephrotic syndrome [Not Recovered/Not Resolved]
  - Exposure during pregnancy [Unknown]
  - Premature delivery [Unknown]
  - Placental insufficiency [Recovered/Resolved]
  - Breast feeding [Unknown]

NARRATIVE: CASE EVENT DATE: 20190311
